FAERS Safety Report 5264512-3 (Version None)
Quarter: 2007Q1

REPORT INFORMATION
  Report Type: 
  Country: None (occurrence: None)
  Receive Date: 20070314
  Receipt Date: 20070301
  Transmission Date: 20070707
  Serious: Yes (Other)
  Sender: FDA-Public Use
  Company Number: PHBS2005CH09503

PATIENT
  Age: 31 Year
  Sex: Female

DRUGS (3)
  1. TEGRETOL [Suspect]
     Indication: EPILEPSY
     Dosage: 400 MG/DAY
  2. CEFUROXIME AXETIL [Suspect]
     Dosage: 1500 MG/DAY
     Dates: start: 20050419, end: 20050429
  3. CIPROFLOXACIN HYDROCHLORIDE [Suspect]
     Dosage: 1000 MG/DAY
     Dates: start: 20050428, end: 20050508

REACTIONS (3)
  - CAESAREAN SECTION [None]
  - DRUG EXPOSURE DURING PREGNANCY [None]
  - NORMAL NEWBORN [None]
